FAERS Safety Report 20567128 (Version 1)
Quarter: 2022Q1

REPORT INFORMATION
  Report Type: Spontaneous
  Country: DE (occurrence: DE)
  Receive Date: 20220308
  Receipt Date: 20220308
  Transmission Date: 20220423
  Serious: Yes (Hospitalization)
  Sender: FDA-Public Use
  Company Number: DE-PFIZER INC-202200332516

PATIENT
  Age: 79 Year
  Sex: Male

DRUGS (1)
  1. SUNITINIB MALATE [Suspect]
     Active Substance: SUNITINIB MALATE
     Dosage: 50 MG, CYCLIC (4 WEEKS, 2 WEEKS BREAK)

REACTIONS (5)
  - Confusional state [Unknown]
  - Dyspnoea [Unknown]
  - Oedema [Unknown]
  - Pyrexia [Unknown]
  - Productive cough [Unknown]
